FAERS Safety Report 7555629-9 (Version None)
Quarter: 2011Q2

REPORT INFORMATION
  Report Type: 
  Country: None (occurrence: None)
  Receive Date: 20110617
  Receipt Date: 20080820
  Transmission Date: 20111010
  Serious: Yes (Other)
  Sender: FDA-Public Use
  Company Number: PHHY2008AU18794

PATIENT
  Sex: Female
  Weight: 70 kg

DRUGS (6)
  1. OXYCONTIN [Concomitant]
  2. ALBUTEROL [Concomitant]
  3. MOBIC [Concomitant]
  4. DESFERAL [Suspect]
     Dosage: 3 G, 6 NIGHTS/WEEK
  5. VALIUM [Concomitant]
  6. TRAMADOL HYDROCHLORIDE [Concomitant]

REACTIONS (1)
  - WHITE BLOOD CELL COUNT INCREASED [None]
